FAERS Safety Report 20818949 (Version 1)
Quarter: 2022Q2

REPORT INFORMATION
  Report Type: Spontaneous
  Country: US (occurrence: None)
  Receive Date: 20220511
  Receipt Date: 20220511
  Transmission Date: 20220720
  Serious: No
  Sender: FDA-Public Use
  Company Number: None

PATIENT
  Age: 64 Year
  Sex: Female
  Weight: 68.95 kg

DRUGS (14)
  1. IBRANCE [Suspect]
     Active Substance: PALBOCICLIB
     Indication: Breast cancer female
     Dosage: OTHER FREQUENCY : QDX21DAYS;?
     Route: 048
     Dates: start: 202003
  2. CARVEDIOLOL [Concomitant]
  3. CITRACEL [Concomitant]
  4. FASLODEX [Concomitant]
  5. AIMOVIG [Concomitant]
  6. AMITRIPTYLINE [Concomitant]
  7. BUMETANIDE [Concomitant]
  8. BUPROPION [Concomitant]
     Active Substance: BUPROPION
  9. CITACEL [Concomitant]
  10. LORAZEPAM [Concomitant]
  11. LOSARTAN [Concomitant]
  12. PANTOPRAZOLE [Concomitant]
  13. VENLAFAXINE [Concomitant]
  14. WELLBUTRIN [Concomitant]
     Active Substance: BUPROPION HYDROCHLORIDE

REACTIONS (3)
  - Tumour marker increased [None]
  - Neoplasm progression [None]
  - Therapy cessation [None]

NARRATIVE: CASE EVENT DATE: 20220511
